FAERS Safety Report 23746766 (Version 1)
Quarter: 2024Q2

REPORT INFORMATION
  Report Type: Other
  Country: US (occurrence: None)
  Receive Date: 20240416
  Receipt Date: 20240416
  Transmission Date: 20240715
  Serious: Yes (Hospitalization, Other)
  Sender: FDA-Public Use
  Company Number: US-ROCHE-3539378

PATIENT
  Age: 76 Year
  Sex: Male
  Weight: 87.168 kg

DRUGS (6)
  1. ACTEMRA [Suspect]
     Active Substance: TOCILIZUMAB
     Indication: Rheumatoid arthritis
     Dosage: STRENGTH: 162MG/0.9ML?IN LEG OR STOMACH AND ROTATES SITES
     Route: 058
  2. ACTEMRA [Suspect]
     Active Substance: TOCILIZUMAB
  3. ACTEMRA [Suspect]
     Active Substance: TOCILIZUMAB
  4. AMLODIPINE [Concomitant]
     Active Substance: AMLODIPINE BESYLATE
  5. ATORVASTATIN [Concomitant]
     Active Substance: ATORVASTATIN
  6. OFEV [Concomitant]
     Active Substance: NINTEDANIB

REACTIONS (6)
  - Body height decreased [Unknown]
  - Staphylococcal infection [Recovering/Resolving]
  - Enterococcal infection [Recovering/Resolving]
  - Back pain [Unknown]
  - Seroma [Recovered/Resolved]
  - Immune system disorder [Not Recovered/Not Resolved]

NARRATIVE: CASE EVENT DATE: 20240216
